FAERS Safety Report 5469149-9 (Version None)
Quarter: 2007Q3

REPORT INFORMATION
  Report Type: 
  Country: None (occurrence: None)
  Receive Date: 20070927
  Receipt Date: 20070919
  Transmission Date: 20080115
  Serious: Yes (Other)
  Sender: FDA-Public Use
  Company Number: PHBS2007JP15661

PATIENT
  Age: 2 Year
  Sex: Female

DRUGS (2)
  1. GLEEVEC [Suspect]
     Indication: CHRONIC MYELOID LEUKAEMIA
     Dosage: 170 MG/D
     Route: 048
     Dates: start: 20050101
  2. GLEEVEC [Suspect]
     Dosage: 170 MG/D
     Route: 048

REACTIONS (3)
  - BLOOD CREATINE PHOSPHOKINASE INCREASED [None]
  - GROWTH RETARDATION [None]
  - PAIN IN EXTREMITY [None]
